FAERS Safety Report 6729656-5 (Version None)
Quarter: 2010Q2

REPORT INFORMATION
  Report Type: 
  Country: None (occurrence: None)
  Receive Date: 20100518
  Receipt Date: 20100429
  Transmission Date: 20101027
  Serious: Yes (Other)
  Sender: FDA-Public Use
  Company Number: US-JNJFOC-20100500836

PATIENT
  Sex: Male
  Weight: 90.72 kg

DRUGS (7)
  1. REMICADE [Suspect]
     Indication: COLITIS ULCERATIVE
     Route: 042
  2. REMICADE [Suspect]
     Route: 042
  3. REMICADE [Suspect]
     Route: 042
  4. SULFASALAZINE [Concomitant]
     Indication: COLITIS ULCERATIVE
  5. OMEPRAZOLE [Concomitant]
     Indication: COLITIS ULCERATIVE
  6. IMURAN [Concomitant]
     Indication: COLITIS ULCERATIVE
  7. PREDNISONE [Concomitant]

REACTIONS (4)
  - BACK PAIN [None]
  - INFUSION RELATED REACTION [None]
  - THROAT TIGHTNESS [None]
  - URTICARIA [None]
